FAERS Safety Report 13475408 (Version 2)
Quarter: 2017Q3

REPORT INFORMATION
  Report Type: Spontaneous
  Country: US (occurrence: US)
  Receive Date: 20170424
  Receipt Date: 20170728
  Transmission Date: 20171127
  Serious: No
  Sender: FDA-Public Use
  Company Number: US-AMGEN-USASP2017037730

PATIENT
  Age: 66 Year
  Sex: Female
  Weight: 65.31 kg

DRUGS (1)
  1. REPATHA [Suspect]
     Active Substance: EVOLOCUMAB
     Indication: HYPERCHOLESTEROLAEMIA
     Dosage: 140 MG, Q2WK
     Route: 065
     Dates: start: 20161206, end: 20170310

REACTIONS (1)
  - Back pain [Recovered/Resolved]

NARRATIVE: CASE EVENT DATE: 20170203
